FAERS Safety Report 13404686 (Version 1)
Quarter: 2017Q2

REPORT INFORMATION
  Report Type: Spontaneous
  Country: US (occurrence: US)
  Receive Date: 20170405
  Receipt Date: 20170405
  Transmission Date: 20170830
  Serious: No
  Sender: FDA-Public Use
  Company Number: US-PERRIGO-17US000557

PATIENT
  Age: 69 Year
  Sex: Female
  Weight: 77.98 kg

DRUGS (1)
  1. ACETAMINOPHEN. [Suspect]
     Active Substance: ACETAMINOPHEN
     Indication: ARTHRITIS
     Dosage: 1300 MG, BID
     Route: 048
     Dates: start: 20170106, end: 20170108

REACTIONS (1)
  - Oral mucosal blistering [Not Recovered/Not Resolved]

NARRATIVE: CASE EVENT DATE: 20170108
